FAERS Safety Report 25168560 (Version 1)
Quarter: 2025Q2

REPORT INFORMATION
  Report Type: Spontaneous
  Country: FR (occurrence: FR)
  Receive Date: 20250407
  Receipt Date: 20250407
  Transmission Date: 20250717
  Serious: Yes (Other)
  Sender: DR REDDYS
  Company Number: None

PATIENT
  Age: 60 Year
  Sex: Male
  Weight: 60 kg

DRUGS (4)
  1. BORTEZOMIB [Suspect]
     Active Substance: BORTEZOMIB
     Indication: Secondary amyloidosis
     Route: 058
     Dates: start: 20250121, end: 20250211
  2. BACTRIM [Suspect]
     Active Substance: SULFAMETHOXAZOLE\TRIMETHOPRIM
     Indication: Opportunistic infection prophylaxis
     Dosage: 2 CP/WEEK
     Route: 048
     Dates: start: 20250116, end: 20250218
  3. DARZALEX [Suspect]
     Active Substance: DARATUMUMAB
     Indication: Secondary amyloidosis
     Route: 042
     Dates: start: 20250116, end: 20250211
  4. CYCLOPHOSPHAMIDE [Suspect]
     Active Substance: CYCLOPHOSPHAMIDE
     Indication: Secondary amyloidosis
     Route: 048
     Dates: start: 20250121, end: 20250211

REACTIONS (2)
  - Rash [Recovering/Resolving]
  - Eosinophilia [Recovering/Resolving]

NARRATIVE: CASE EVENT DATE: 20250208
